FAERS Safety Report 9378439 (Version 1)
Quarter: 2013Q3

REPORT INFORMATION
  Report Type: Spontaneous
  Country: BR (occurrence: BR)
  Receive Date: 20130701
  Receipt Date: 20130701
  Transmission Date: 20140515
  Serious: Yes (Other)
  Sender: FDA-Public Use
  Company Number: BR-JNJFOC-20130614014

PATIENT
  Age: 35 Year
  Sex: Male
  Weight: 85 kg

DRUGS (2)
  1. NICORETTE 4 MG GUM [Suspect]
     Indication: PRODUCT USED FOR UNKNOWN INDICATION
     Route: 048
     Dates: start: 20110804, end: 201305
  2. NICOTINE PATCH [Concomitant]
     Indication: PRODUCT USED FOR UNKNOWN INDICATION
     Route: 062
     Dates: start: 201108, end: 201108

REACTIONS (3)
  - Nicotine dependence [Recovered/Resolved]
  - Intentional drug misuse [Unknown]
  - Drug ineffective [Unknown]
